FAERS Safety Report 7926699-0 (Version None)
Quarter: 2011Q4

REPORT INFORMATION
  Report Type: 
  Country: None (occurrence: None)
  Receive Date: 20111118
  Receipt Date: 20111115
  Transmission Date: 20120403
  Serious: No
  Sender: FDA-Public Use
  Company Number: US-PFIZER INC-2011230916

PATIENT
  Sex: Female

DRUGS (9)
  1. HYOSCYAMINE [Concomitant]
     Dosage: 125 MG, 3X/DAY
  2. KLONOPIN [Concomitant]
     Dosage: 1 BID
  3. LYRICA [Concomitant]
     Dosage: 150 MG, 2X/DAY
  4. CYMBALTA [Concomitant]
     Dosage: 60, 1 QD
  5. ALPRAZOLAM [Concomitant]
     Dosage: 1 MG, 3X/DAY
  6. HYDROMORFON [Concomitant]
     Dosage: 4 UG, QID PRN
  7. LIPITOR [Suspect]
     Indication: HYPERLIPIDAEMIA
     Dosage: 40 MG, UNK
     Route: 048
     Dates: start: 20110309, end: 20110812
  8. AMBIEN [Concomitant]
     Dosage: 10 MG, QD
  9. SYNTHROID [Concomitant]
     Dosage: 100 UG, UNK

REACTIONS (7)
  - PARAESTHESIA [None]
  - FIBROMYALGIA [None]
  - NEUROPATHY PERIPHERAL [None]
  - MYALGIA [None]
  - PAIN [None]
  - PAIN IN EXTREMITY [None]
  - HYPOAESTHESIA [None]
